FAERS Safety Report 24718070 (Version 4)
Quarter: 2025Q2

REPORT INFORMATION
  Report Type: Report from Study
  Country: US (occurrence: US)
  Receive Date: 20241210
  Receipt Date: 20250607
  Transmission Date: 20250717
  Serious: Yes (Other)
  Sender: TAKEDA
  Company Number: US-TAKEDA-2024TUS120771

PATIENT
  Sex: Male
  Weight: 75.89 kg

DRUGS (4)
  1. FRUQUINTINIB [Suspect]
     Active Substance: FRUQUINTINIB
     Indication: Colon cancer
  2. FRUQUINTINIB [Suspect]
     Active Substance: FRUQUINTINIB
  3. FRUQUINTINIB [Suspect]
     Active Substance: FRUQUINTINIB
  4. GABAPENTIN [Concomitant]
     Active Substance: GABAPENTIN

REACTIONS (20)
  - Pulmonary embolism [Unknown]
  - Sensitive skin [Unknown]
  - Skin fissures [Unknown]
  - Cough [Unknown]
  - Productive cough [Unknown]
  - Nausea [Unknown]
  - Back disorder [Unknown]
  - Arthropathy [Unknown]
  - Product dose omission issue [Unknown]
  - Contusion [Unknown]
  - Erythema [Unknown]
  - Myalgia [Unknown]
  - Glossitis [Unknown]
  - Epistaxis [Unknown]
  - Diarrhoea [Unknown]
  - Fall [Unknown]
  - Arthralgia [Unknown]
  - Insomnia [Unknown]
  - Dysphonia [Unknown]
  - Skin mass [Unknown]
